FAERS Safety Report 7342529-2 (Version None)
Quarter: 2011Q1

REPORT INFORMATION
  Report Type: 
  Country: None (occurrence: None)
  Receive Date: 20110310
  Receipt Date: 20110301
  Transmission Date: 20110831
  Serious: Yes (Other)
  Sender: FDA-Public Use
  Company Number: US-BAYER-2010-004319

PATIENT
  Sex: Female
  Weight: 107.48 kg

DRUGS (3)
  1. MIRENA [Suspect]
     Indication: CONTRACEPTION
     Dosage: UNK
  2. MIRENA [Suspect]
  3. MIRENA [Suspect]
     Dosage: UNK
     Dates: start: 20101207

REACTIONS (1)
  - LOSS OF CONSCIOUSNESS [None]
